FAERS Safety Report 9586284 (Version 2)
Quarter: 2013Q4

REPORT INFORMATION
  Report Type: Spontaneous
  Country: US (occurrence: None)
  Receive Date: 20131001
  Receipt Date: 20131009
  Transmission Date: 20140711
  Serious: Yes (Hospitalization)
  Sender: FDA-Public Use
  Company Number: 2013US002547

PATIENT
  Age: 23 Year
  Sex: Male

DRUGS (2)
  1. ICLUSIG [Suspect]
     Indication: ACUTE LYMPHOCYTIC LEUKAEMIA
     Route: 048
     Dates: start: 20130521
  2. ICLUSIG [Suspect]
     Indication: CHROMOSOME ANALYSIS ABNORMAL
     Route: 048
     Dates: start: 20130521

REACTIONS (2)
  - Transfusion [None]
  - Platelet transfusion [None]
